FAERS Safety Report 6468559-0 (Version None)
Quarter: 2009Q4

REPORT INFORMATION
  Report Type: 
  Country: None (occurrence: None)
  Receive Date: 20091203
  Receipt Date: 20091127
  Transmission Date: 20100525
  Serious: Yes (Hospitalization)
  Sender: FDA-Public Use
  Company Number: RU-ASTRAZENECA-2009SE29397

PATIENT
  Sex: Male
  Weight: 80 kg

DRUGS (2)
  1. SEROQUEL [Suspect]
     Indication: SCHIZOPHRENIA
     Route: 048
  2. AZALEPTIN [Concomitant]
     Indication: MENTAL DISORDER
     Route: 048

REACTIONS (4)
  - AGGRESSION [None]
  - ANTISOCIAL PERSONALITY DISORDER [None]
  - ANXIETY [None]
  - DISINHIBITION [None]
